FAERS Safety Report 7045602-1 (Version None)
Quarter: 2010Q4

REPORT INFORMATION
  Report Type: 
  Country: None (occurrence: None)
  Receive Date: 20101013
  Receipt Date: 20101013
  Transmission Date: 20110411
  Serious: Yes (Life-Threatening, Hospitalization)
  Sender: FDA-Public Use
  Company Number: None

PATIENT
  Sex: Female
  Weight: 106.5953 kg

DRUGS (1)
  1. TOPIRAMATE [Suspect]

REACTIONS (9)
  - CERVICAL VERTEBRAL FRACTURE [None]
  - CONVULSION [None]
  - HAND FRACTURE [None]
  - IMPAIRED DRIVING ABILITY [None]
  - PRODUCT SUBSTITUTION ISSUE [None]
  - ROAD TRAFFIC ACCIDENT [None]
  - SPLENIC RUPTURE [None]
  - STERNAL FRACTURE [None]
  - WRIST FRACTURE [None]
